FAERS Safety Report 8892761 (Version 1)
Quarter: 2012Q4

REPORT INFORMATION
  Report Type: Spontaneous
  Country: US (occurrence: None)
  Receive Date: 20121106
  Receipt Date: 20121106
  Transmission Date: 20130627
  Serious: Yes (Hospitalization)
  Sender: FDA-Public Use
  Company Number: None

PATIENT
  Age: 53 Year
  Sex: Female
  Weight: 56.25 kg

DRUGS (1)
  1. DASATINIB [Suspect]
     Indication: CHRONIC MYELOID LEUKEMIA
     Route: 048
     Dates: start: 20120822, end: 20121021

REACTIONS (7)
  - White blood cell count decreased [None]
  - Neutropenia [None]
  - Platelet count abnormal [None]
  - Rectal haemorrhage [None]
  - Large intestinal ulcer haemorrhage [None]
  - Enterocolitis haemorrhagic [None]
  - Cytomegalovirus colitis [None]
